FAERS Safety Report 10854223 (Version 1)
Quarter: 2015Q1

REPORT INFORMATION
  Report Type: Report from Study
  Country: IN (occurrence: IN)
  Receive Date: 20150223
  Receipt Date: 20150223
  Transmission Date: 20150721
  Serious: Yes (Other)
  Sender: FDA-Public Use
  Company Number: IN-AUROBINDO-AUR-APL-2015-01370

PATIENT
  Age: 15 Year
  Sex: Female

DRUGS (10)
  1. NEVIRAPINE. [Suspect]
     Active Substance: NEVIRAPINE
     Indication: HIV INFECTION
  2. LAMIVUDINE. [Suspect]
     Active Substance: LAMIVUDINE
     Indication: HIV INFECTION
     Dosage: UNK
     Route: 065
  3. ETHIONAMIDE [Suspect]
     Active Substance: ETHIONAMIDE
     Indication: PULMONARY TUBERCULOSIS
     Dosage: UNK
     Route: 065
     Dates: start: 20110222
  4. ETHAMBUTOL [Suspect]
     Active Substance: ETHAMBUTOL HYDROCHLORIDE
     Indication: PULMONARY TUBERCULOSIS
     Dosage: UNK
     Route: 065
     Dates: start: 20110222
  5. ZIDOVUDINE. [Suspect]
     Active Substance: ZIDOVUDINE
     Indication: HIV INFECTION
  6. MOXIFLOXACIN [Suspect]
     Active Substance: MOXIFLOXACIN
     Indication: PULMONARY TUBERCULOSIS
     Dosage: UNK
     Route: 065
     Dates: start: 20110222
  7. CYCLOSERINE. [Suspect]
     Active Substance: CYCLOSERINE
     Indication: PULMONARY TUBERCULOSIS
     Dosage: UNK
     Route: 065
     Dates: start: 20110222
  8. AMOXICILLIN+CLAVULANIC ACID [Suspect]
     Active Substance: AMOXICILLIN\CLAVULANIC ACID
     Indication: PULMONARY TUBERCULOSIS
     Dosage: UNK
     Route: 065
     Dates: start: 20110222
  9. KANAMYCIN [Suspect]
     Active Substance: KANAMYCIN\KANAMYCIN A SULFATE
     Indication: PULMONARY TUBERCULOSIS
     Dosage: UNK
     Route: 065
     Dates: start: 20110222
  10. ISONIAZIDE [Suspect]
     Active Substance: ISONIAZID
     Indication: PULMONARY TUBERCULOSIS
     Dosage: UNK
     Route: 065
     Dates: start: 20110222

REACTIONS (2)
  - Gastrointestinal disorder [Unknown]
  - Anxiety disorder [Unknown]
